FAERS Safety Report 9270748 (Version 1)
Quarter: 2013Q2

REPORT INFORMATION
  Report Type: Report from Study
  Country: US (occurrence: US)
  Receive Date: 20130503
  Receipt Date: 20130503
  Transmission Date: 20140414
  Serious: Yes (Other)
  Sender: FDA-Public Use
  Company Number: US-US-EMD SERONO, INC.-7208522

PATIENT
  Sex: Female

DRUGS (1)
  1. REBIF [Suspect]
     Indication: PRODUCT USED FOR UNKNOWN INDICATION
     Route: 058
     Dates: start: 20091027

REACTIONS (6)
  - Rheumatoid arthritis [Unknown]
  - Exostosis [Unknown]
  - Vitamin D decreased [Unknown]
  - Injection site discolouration [Not Recovered/Not Resolved]
  - Anaemia [Unknown]
  - Injection site pain [Not Recovered/Not Resolved]
